FAERS Safety Report 4712802-2 (Version None)
Quarter: 2005Q3

REPORT INFORMATION
  Report Type: 
  Country: None (occurrence: None)
  Receive Date: 20050708
  Receipt Date: 20050708
  Transmission Date: 20060218
  Serious: Yes (Hospitalization, Other)
  Sender: FDA-Public Use
  Company Number: None

PATIENT
  Sex: Male
  Weight: 72.3 kg

DRUGS (1)
  1. GEMCITABINE [Suspect]
     Indication: PANCREATIC CARCINOMA
     Dosage: 1500 MG/M2 IV OVER 150 MIN Q WK X3 EVERY 4 WEEKS
     Route: 042
     Dates: start: 20050216, end: 20050615

REACTIONS (6)
  - CELLULITIS [None]
  - CHEST PAIN [None]
  - DYSPNOEA [None]
  - JOINT SWELLING [None]
  - OEDEMA PERIPHERAL [None]
  - PAIN [None]
